FAERS Safety Report 9739033 (Version 2)
Quarter: 2014Q1

REPORT INFORMATION
  Report Type: Spontaneous
  Country: FR (occurrence: FR)
  Receive Date: 20131209
  Receipt Date: 20140212
  Transmission Date: 20141002
  Serious: Yes (Death)
  Sender: FDA-Public Use
  Company Number: PHHY2013FR141420

PATIENT
  Age: 64 Year
  Sex: Female

DRUGS (13)
  1. TAREG [Suspect]
     Indication: HYPERTENSION
     Dosage: 40 MG, QD
     Dates: end: 20130829
  2. MIANSERIN [Suspect]
     Dosage: 15 MG, QD
     Route: 048
     Dates: end: 20130829
  3. PREVISCAN [Suspect]
     Indication: ATRIAL FIBRILLATION
     Dosage: UNK UKN, UNK
     Dates: end: 20130829
  4. ARICEPT [Suspect]
     Indication: DEMENTIA
     Dosage: 10 MG, QD
     Dates: end: 20130829
  5. TAHOR [Suspect]
     Indication: HYPERCHOLESTEROLAEMIA
     Dosage: 10 MG, UNK
     Route: 048
     Dates: end: 20130909
  6. EBIXA [Suspect]
     Indication: DEMENTIA
     Dosage: 20 MG, QD
     Route: 048
     Dates: end: 20130829
  7. RISPERDAL [Suspect]
     Dosage: 1 MG, QD
     Route: 048
     Dates: end: 20130829
  8. LASILIX [Suspect]
     Indication: HYPERTENSION
     Dosage: 40 MG, QD
     Route: 048
     Dates: end: 20130829
  9. CARDENSIEL [Suspect]
     Indication: HYPERTENSION
     Dosage: 2.5 MG, QD
     Route: 048
     Dates: end: 20130829
  10. INEXIUM//ESOMEPRAZOLE MAGNESIUM [Suspect]
     Dosage: 20 MG, UNK
     Route: 048
     Dates: end: 20130829
  11. LANTUS [Suspect]
     Indication: DIABETES MELLITUS
     Dosage: 100 IU/ML, UNK
     Route: 058
     Dates: end: 20130829
  12. ZYLORIC [Suspect]
     Indication: HYPERURICAEMIA
     Dosage: 100 MG, QD
     Route: 048
     Dates: end: 20130829
  13. NOVORAPID [Suspect]
     Dosage: UNK UKN, UNK
     Dates: end: 20130829

REACTIONS (1)
  - Subdural haematoma [Fatal]
